FAERS Safety Report 9153061 (Version 1)
Quarter: 2013Q1

REPORT INFORMATION
  Report Type: Report from Study
  Country: GB (occurrence: GB)
  Receive Date: 20130311
  Receipt Date: 20130311
  Transmission Date: 20140127
  Serious: Yes (Death)
  Sender: FDA-Public Use
  Company Number: GB-AMGEN-GBRCT2012046107

PATIENT
  Age: 63 Year
  Sex: Female
  Weight: 51 kg

DRUGS (13)
  1. ETANERCEPT [Suspect]
     Indication: RHEUMATOID ARTHRITIS
     Dosage: 25 MG, 2 TIMES/WK
     Dates: start: 20041017, end: 20041110
  2. AMITRIPTYLINE [Concomitant]
     Dosage: 50 MG, 1X/DAY
  3. CO-DYDRAMOL [Concomitant]
     Dosage: UNK
  4. DIHYDROCODEINE [Concomitant]
     Dosage: UNK
  5. IRON SULFATE [Concomitant]
     Dosage: 200 MG, 2X/DAY
  6. GLIPIZIDE [Concomitant]
     Dosage: 5 MG, 4X/DAY
  7. METFORMIN HYDROCHLORIDE [Concomitant]
     Dosage: 1500 MG, 1X/DAY
  8. OMEPRAZOLE [Concomitant]
     Dosage: 20 MG, 1X/DAY
  9. PIOGLITAZONE HYDROCHLORIDE [Concomitant]
     Dosage: 45 MG, 1X/DAY
  10. SALBUTAMOL [Concomitant]
     Dosage: UNK
  11. SERTRALINE HYDROCHLORIDE [Concomitant]
     Dosage: 100 MG, 1X/DAY
  12. SERETIDE [Concomitant]
     Dosage: 250 MG 2 DF, 2X/DAY
  13. TIOTROPIUM [Concomitant]
     Dosage: 18 UG, 1X/DAY
     Dates: start: 20120110

REACTIONS (1)
  - Lung neoplasm malignant [Fatal]
